FAERS Safety Report 7215643-X (Version None)
Quarter: 2011Q1

REPORT INFORMATION
  Report Type: 
  Country: None (occurrence: None)
  Receive Date: 20110104
  Receipt Date: 20110104
  Transmission Date: 20110831
  Serious: Yes (Life-Threatening, Hospitalization, Congenital Anomaly, Other)
  Sender: FDA-Public Use
  Company Number: None

PATIENT
  Sex: Female
  Weight: 4.3092 kg

DRUGS (1)
  1. TERRAMYCIN [Suspect]
     Indication: INFLUENZA
     Dosage: 1 TAB 4 TIMES A DAY PO
     Route: 048
     Dates: start: 19850214, end: 19850224

REACTIONS (15)
  - FATIGUE [None]
  - NASOPHARYNGITIS [None]
  - MATERNAL DRUGS AFFECTING FOETUS [None]
  - ANTISOCIAL BEHAVIOUR [None]
  - ABDOMINAL PAIN UPPER [None]
  - IMPAIRED WORK ABILITY [None]
  - ANXIETY [None]
  - DEPRESSION [None]
  - NERVOUSNESS [None]
  - JAUNDICE [None]
  - GASTROOESOPHAGEAL REFLUX DISEASE [None]
  - FIBROMYALGIA [None]
  - DIZZINESS [None]
  - HYPOGLYCAEMIA [None]
  - SUICIDAL IDEATION [None]
